FAERS Safety Report 4876227-1 (Version None)
Quarter: 2006Q1

REPORT INFORMATION
  Report Type: 
  Country: None (occurrence: None)
  Receive Date: 20060106
  Receipt Date: 20051228
  Transmission Date: 20060701
  Serious: Yes (Hospitalization)
  Sender: FDA-Public Use
  Company Number: 2005BI020066

PATIENT
  Sex: Female

DRUGS (7)
  1. AVONEX [Suspect]
     Indication: MULTIPLE SCLEROSIS
     Dosage: 30 UG;QW;IM
     Route: 030
     Dates: start: 20021101
  2. LIORESAL [Concomitant]
  3. SIRDALUD [Concomitant]
  4. GABAPENTIN [Concomitant]
  5. AKINETON [Concomitant]
  6. ZOLIM [Concomitant]
  7. OMEPRAN [Concomitant]

REACTIONS (1)
  - VISUAL FIELD DEFECT [None]
